FAERS Safety Report 10185590 (Version 1)
Quarter: 2014Q2

REPORT INFORMATION
  Report Type: Spontaneous
  Country: US (occurrence: None)
  Receive Date: 20140520
  Receipt Date: 20140520
  Transmission Date: 20141212
  Serious: No
  Sender: FDA-Public Use
  Company Number: None

PATIENT
  Age: 77 Year
  Sex: Female
  Weight: 71.67 kg

DRUGS (6)
  1. NORVASC [Suspect]
     Indication: HYPERTENSION
     Dates: start: 20140310, end: 20140415
  2. MONUROL [Concomitant]
  3. VIVELLE-DOT [Concomitant]
  4. MONOHYDRATE [Concomitant]
  5. LOSARTAN [Concomitant]
  6. SPIRONOLACTON-HYDROCHLOROTHIAZ [Concomitant]

REACTIONS (2)
  - Oedema peripheral [None]
  - Abdominal discomfort [None]
